FAERS Safety Report 23276628 (Version 1)
Quarter: 2023Q4

REPORT INFORMATION
  Report Type: Spontaneous
  Country: US (occurrence: US)
  Receive Date: 20231208
  Receipt Date: 20231208
  Transmission Date: 20240109
  Serious: No
  Sender: FDA-Public Use
  Company Number: US-SA-SAC20231130000363

PATIENT
  Age: 75 Year
  Sex: Female

DRUGS (1)
  1. KEVZARA [Suspect]
     Active Substance: SARILUMAB
     Indication: Polymyalgia rheumatica
     Dosage: DOSE - 200MG, FREQUENCY- EVERY 2 WEEKS
     Route: 058
     Dates: start: 20231103

REACTIONS (2)
  - COVID-19 [Unknown]
  - Urinary tract infection [Unknown]
